FAERS Safety Report 13220293 (Version 1)
Quarter: 2017Q1

REPORT INFORMATION
  Report Type: Spontaneous
  Country: JP (occurrence: JP)
  Receive Date: 20170210
  Receipt Date: 20170210
  Transmission Date: 20170428
  Serious: Yes (Death)
  Sender: FDA-Public Use
  Company Number: JP-JNJFOC-20170209306

PATIENT
  Age: 68 Year
  Sex: Male

DRUGS (1)
  1. CANAGLU [Suspect]
     Active Substance: CANAGLIFLOZIN
     Indication: PRODUCT USED FOR UNKNOWN INDICATION
     Route: 048
     Dates: start: 20160605

REACTIONS (1)
  - Death [Fatal]

NARRATIVE: CASE EVENT DATE: 20161208
